FAERS Safety Report 20738893 (Version 2)
Quarter: 2022Q2

REPORT INFORMATION
  Report Type: Spontaneous
  Country: IR (occurrence: IR)
  Receive Date: 20220422
  Receipt Date: 20220422
  Transmission Date: 20220721
  Serious: Yes (Death, Hospitalization, Other)
  Sender: FDA-Public Use
  Company Number: IR-LUPIN PHARMACEUTICALS INC.-2022-05938

PATIENT
  Age: 59 Year
  Sex: Male

DRUGS (4)
  1. METHYLPREDNISOLONE [Suspect]
     Active Substance: METHYLPREDNISOLONE
     Indication: COVID-19
     Dosage: 250 MILLIGRAM, SINGLE (AT A DOSE OF 250MG STAT AND THEN 125MG FOR 3 DAYS)
     Route: 065
  2. METHYLPREDNISOLONE [Suspect]
     Active Substance: METHYLPREDNISOLONE
     Dosage: 125 MILLIGRAM, QD (AT A DOSE OF 250MG STAT AND THEN 125MG FOR 3 DAYS)
     Route: 065
  3. REMDESIVIR [Suspect]
     Active Substance: REMDESIVIR
     Indication: COVID-19
     Dosage: 250 MILLIGRAM, SINGLE (AT A DOSE OF  250 MG STAT AND THEN 100 MG DAILY)
     Route: 065
  4. REMDESIVIR [Suspect]
     Active Substance: REMDESIVIR
     Dosage: 100 MILLIGRAM, QD (AT A DOSE OF  250 MG STAT AND THEN 100 MG DAILY)
     Route: 042

REACTIONS (5)
  - Mucormycosis [Fatal]
  - Loss of consciousness [Fatal]
  - Central nervous system infection [Fatal]
  - Hyperglycaemia [Unknown]
  - Off label use [Unknown]
